FAERS Safety Report 20560345 (Version 1)
Quarter: 2022Q1

REPORT INFORMATION
  Report Type: Spontaneous
  Country: RO (occurrence: RO)
  Receive Date: 20220307
  Receipt Date: 20220307
  Transmission Date: 20220424
  Serious: Yes (Other)
  Sender: FDA-Public Use
  Company Number: RO-Fresenius Kabi-FK202202516

PATIENT
  Age: 70 Year

DRUGS (1)
  1. MOXIFLOXACIN [Suspect]
     Active Substance: MOXIFLOXACIN
     Indication: Antibiotic therapy
     Dosage: IV MOXIFLOXACIN (800 MG/DAY) (FLUOROQUINOLONE) (14-DAY COURSE)
     Route: 042

REACTIONS (1)
  - Cardiac failure acute [Unknown]
